FAERS Safety Report 19990401 (Version 1)
Quarter: 2021Q4

REPORT INFORMATION
  Report Type: Spontaneous
  Country: US (occurrence: US)
  Receive Date: 20211023
  Receipt Date: 20211023
  Transmission Date: 20220303
  Serious: No
  Sender: FDA-Public Use
  Company Number: None

PATIENT
  Sex: Female
  Weight: 63.9 kg

DRUGS (15)
  1. IBRANCE [Suspect]
     Active Substance: PALBOCICLIB
     Indication: Breast cancer
     Dosage: ?          OTHER FREQUENCY:DAILY FOR 21/28D;
     Route: 048
     Dates: start: 20200520
  2. ACETAMINOPHEN [Concomitant]
     Active Substance: ACETAMINOPHEN
  3. ALBUTEROL SULFATE [Concomitant]
     Active Substance: ALBUTEROL SULFATE
  4. HYDROMORPHONE [Concomitant]
     Active Substance: HYDROMORPHONE
  5. IBUPROFEN [Concomitant]
     Active Substance: IBUPROFEN
  6. LETROZOLE [Concomitant]
     Active Substance: LETROZOLE
  7. LEVOTHYROXINE [Concomitant]
     Active Substance: LEVOTHYROXINE
  8. LISINOPRIL [Concomitant]
     Active Substance: LISINOPRIL
  9. METOPROLOL [Concomitant]
     Active Substance: METOPROLOL
  10. SPIRIVA [Concomitant]
     Active Substance: TIOTROPIUM BROMIDE MONOHYDRATE
  11. TRAMADOL [Concomitant]
     Active Substance: TRAMADOL
  12. VENLAFAXINE [Concomitant]
     Active Substance: VENLAFAXINE HYDROCHLORIDE
  13. VITAMIN B12 [Concomitant]
     Active Substance: CYANOCOBALAMIN
  14. VITAMIN D [Concomitant]
     Active Substance: VITAMIN D NOS
  15. ZOMETA [Concomitant]
     Active Substance: ZOLEDRONIC ACID

REACTIONS (1)
  - Arthralgia [None]
